FAERS Safety Report 10413595 (Version 4)
Quarter: 2015Q1

REPORT INFORMATION
  Report Type: Report from Study
  Country: US (occurrence: US)
  Receive Date: 20140827
  Receipt Date: 20150305
  Transmission Date: 20150720
  Serious: Yes (Death)
  Sender: FDA-Public Use
  Company Number: US-NAPPMUNDI-USA-2014-0116853

PATIENT
  Sex: Male

DRUGS (2)
  1. OXYCONTIN [Suspect]
     Active Substance: OXYCODONE HYDROCHLORIDE
     Indication: LUNG CANCER METASTATIC
     Dosage: 40 MG, Q8H
     Route: 048
     Dates: start: 20140827
  2. OXYCONTIN [Suspect]
     Active Substance: OXYCODONE HYDROCHLORIDE
     Dosage: 20 MG, BID
     Route: 048
     Dates: start: 201408

REACTIONS (3)
  - Insomnia [Unknown]
  - Malignant neoplasm progression [Fatal]
  - Pain [Not Recovered/Not Resolved]
